FAERS Safety Report 7734768-3 (Version None)
Quarter: 2011Q3

REPORT INFORMATION
  Report Type: 
  Country: None (occurrence: None)
  Receive Date: 20110907
  Receipt Date: 20110824
  Transmission Date: 20111222
  Serious: Yes (Other)
  Sender: FDA-Public Use
  Company Number: AU-CEPHALON-US024490

PATIENT
  Sex: Female

DRUGS (1)
  1. MODAFINIL [Suspect]
     Indication: NARCOLEPSY
     Route: 048
     Dates: start: 20080601

REACTIONS (2)
  - URTICARIA [None]
  - BLISTER [None]
